FAERS Safety Report 9223257 (Version 3)
Quarter: 2013Q2

REPORT INFORMATION
  Report Type: Spontaneous
  Country: US (occurrence: US)
  Receive Date: 20130410
  Receipt Date: 20130624
  Transmission Date: 20140414
  Serious: Yes (Hospitalization, Other)
  Sender: FDA-Public Use
  Company Number: US-TARO-2013P1004216

PATIENT
  Age: 79 Year
  Sex: Male

DRUGS (1)
  1. WARFARIN SODIUM TABLETS USP 2.5MG [Suspect]

REACTIONS (13)
  - International normalised ratio increased [Recovered/Resolved]
  - Pneumonia [Unknown]
  - Chronic obstructive pulmonary disease [Unknown]
  - Influenza [Unknown]
  - Renal failure [Recovering/Resolving]
  - Hyponatraemia [Unknown]
  - Anaemia [Recovering/Resolving]
  - Incorrect dose administered [Unknown]
  - Prothrombin time prolonged [Recovering/Resolving]
  - Haemoptysis [Unknown]
  - Purpura [Unknown]
  - Gastrointestinal haemorrhage [Unknown]
  - Diabetes mellitus [Unknown]
